FAERS Safety Report 25029642 (Version 3)
Quarter: 2025Q3

REPORT INFORMATION
  Report Type: Spontaneous
  Country: US (occurrence: US)
  Receive Date: 20250303
  Receipt Date: 20250809
  Transmission Date: 20251020
  Serious: Yes (Other)
  Sender: ALEXION PHARMACEUTICALS
  Company Number: US-AstraZeneca-CH-00816088A

PATIENT
  Sex: Female

DRUGS (4)
  1. FARXIGA [Suspect]
     Active Substance: DAPAGLIFLOZIN PROPANEDIOL
     Indication: Cardiac disorder
     Dosage: 5 MILLIGRAM, QD
     Route: 065
  2. TOPROL XL [Suspect]
     Active Substance: METOPROLOL SUCCINATE
     Indication: Cardiac disorder
     Route: 065
  3. TOPROL XL [Suspect]
     Active Substance: METOPROLOL SUCCINATE
     Indication: Renal disorder
  4. METOPROLOL [Concomitant]
     Active Substance: METOPROLOL
     Route: 065

REACTIONS (8)
  - Leukaemia [Unknown]
  - Diarrhoea [Unknown]
  - Blood pressure decreased [Unknown]
  - Blood creatinine increased [Unknown]
  - Renal disorder [Unknown]
  - Product dose omission issue [Unknown]
  - Pollakiuria [Unknown]
  - Therapy change [Unknown]
